FAERS Safety Report 7889405-4 (Version None)
Quarter: 2011Q4

REPORT INFORMATION
  Report Type: 
  Country: None (occurrence: None)
  Receive Date: 20111103
  Receipt Date: 20111024
  Transmission Date: 20120403
  Serious: Yes (Hospitalization)
  Sender: FDA-Public Use
  Company Number: JP-EISAI INC-E7389-01351-SPO-JP

PATIENT
  Sex: Female
  Weight: 49 kg

DRUGS (9)
  1. AMLODIPINE [Concomitant]
     Indication: HYPERTENSION
     Route: 048
  2. HALAVEN [Suspect]
     Indication: BREAST CANCER RECURRENT
     Route: 041
     Dates: start: 20110729
  3. DECADRON [Concomitant]
     Indication: PROPHYLAXIS
     Route: 041
  4. HALAVEN [Suspect]
     Indication: METASTASES TO LUNG
     Route: 041
     Dates: start: 20110909
  5. AMLODIPINE [Concomitant]
     Route: 048
     Dates: start: 20110729
  6. GRANISETRON [Concomitant]
     Indication: PROPHYLAXIS
     Route: 041
  7. DECADRON [Concomitant]
     Route: 041
  8. AMLODIPINE [Concomitant]
     Route: 048
     Dates: start: 20110731
  9. GRANISETRON [Concomitant]
     Route: 041

REACTIONS (2)
  - DIZZINESS [None]
  - MALAISE [None]
